FAERS Safety Report 9849808 (Version 1)
Quarter: 2013Q4

REPORT INFORMATION
  Report Type: Spontaneous
  Country: US (occurrence: None)
  Receive Date: 20131226
  Receipt Date: 20131226
  Transmission Date: 20140711
  Serious: Yes (Hospitalization)
  Sender: FDA-Public Use
  Company Number: PHEH2013US004151

PATIENT
  Age: 78 Year
  Sex: Male
  Weight: 86.2 kg

DRUGS (17)
  1. ZOMETA (ZOLEDRONATE) UNKNOWN [Suspect]
     Indication: PLASMA CELL MYELOMA
  2. ALLOPURINOL (ALLOPURINOL) [Concomitant]
  3. ASPIRIN (ACETYLSALICYLIC ACID) [Concomitant]
  4. FUROSEMIDE (FUROSEMIDE) [Concomitant]
  5. LEVOTHYROXIN (LEVOTHYROXINE SODIUM) [Concomitant]
  6. LISINOPRIL (LISINOPRIL) [Concomitant]
  7. METOPROLOL (METOPROLOL) [Concomitant]
  8. MIRALAX (MACROGOL) [Concomitant]
  9. MORPHINE (MORPHINE) [Concomitant]
  10. MULTI-VIT (VITAMINS NOS) [Concomitant]
  11. OCUVITE /01053801/ (ASCORBIC ACID, RETINOL, TOCOPHEROL) [Concomitant]
  12. OXYCODONE (OXYCODONE) [Concomitant]
  13. PROTONIX (PANTOPRAZOLE SODIUM SESQUIHYDRATE) [Concomitant]
  14. SIMVASTATIN (SIMVASTATIN) [Concomitant]
  15. SODIUM BICARBONATE (SODIUM BICARBONATE) [Concomitant]
  16. VELCADE (BORTEZOMIB) [Concomitant]
  17. ZOLPIDEM (ZOLPIDEM) [Concomitant]

REACTIONS (1)
  - Platelet count decreased [None]
